FAERS Safety Report 16526901 (Version 2)
Quarter: 2019Q3

REPORT INFORMATION
  Report Type: Spontaneous
  Country: US (occurrence: US)
  Receive Date: 20190703
  Receipt Date: 20190913
  Transmission Date: 20191004
  Serious: Yes (Other)
  Sender: FDA-Public Use
  Company Number: US-ELI_LILLY_AND_COMPANY-US201906014736

PATIENT
  Sex: Male

DRUGS (23)
  1. FLONASE [MOMETASONE FUROATE] [Concomitant]
     Active Substance: MOMETASONE FUROATE
     Indication: SEASONAL ALLERGY
     Dosage: UNK
     Dates: start: 201701
  2. CIALIS [Suspect]
     Active Substance: TADALAFIL
     Dosage: 20 MG
     Route: 065
     Dates: start: 20100706, end: 201009
  3. CIALIS [Suspect]
     Active Substance: TADALAFIL
     Dosage: 20 MG
     Route: 065
     Dates: start: 20080527, end: 200905
  4. FISH OIL [Concomitant]
     Active Substance: FISH OIL
     Indication: PRODUCT USED FOR UNKNOWN INDICATION
     Dosage: UNK
  5. MOTRIN [Concomitant]
     Active Substance: IBUPROFEN
     Indication: HEADACHE
  6. NORCO [Concomitant]
     Active Substance: ACETAMINOPHEN\HYDROCODONE BITARTRATE
     Indication: PROCEDURAL PAIN
     Dosage: UNK
     Dates: start: 20190308, end: 20190309
  7. APAP WITH CODEINE [Concomitant]
     Indication: PROCEDURAL PAIN
     Dosage: UNK
     Dates: start: 20190310, end: 20190330
  8. PREDNISONE. [Concomitant]
     Active Substance: PREDNISONE
     Indication: STEROID THERAPY
     Dosage: UNK
     Dates: start: 20161207, end: 20180118
  9. CIALIS [Suspect]
     Active Substance: TADALAFIL
     Indication: ERECTILE DYSFUNCTION
     Dosage: 20 MG, PRN
     Route: 065
     Dates: start: 20070925, end: 200804
  10. VIAGRA [Suspect]
     Active Substance: SILDENAFIL CITRATE
     Dosage: 50 MG, PRN
     Route: 065
     Dates: start: 20000516, end: 200112
  11. REVATIO [Suspect]
     Active Substance: SILDENAFIL CITRATE
     Indication: ERECTILE DYSFUNCTION
     Dosage: 20 MG, PRN (OCCASIONALY/ONCE EVERY TWO MONTHS)
     Route: 065
     Dates: start: 20160310, end: 201811
  12. TYLENOL [Concomitant]
     Active Substance: ACETAMINOPHEN
     Indication: HEADACHE
  13. VIAGRA [Suspect]
     Active Substance: SILDENAFIL CITRATE
     Dosage: 50-100 MG, PRN
     Route: 065
     Dates: start: 20060427, end: 200708
  14. VIAGRA [Suspect]
     Active Substance: SILDENAFIL CITRATE
     Dosage: 50-100 MG, PRN
     Route: 065
     Dates: start: 20080502, end: 20080526
  15. MVI VITAMINS NOS [Concomitant]
     Indication: PRODUCT USED FOR UNKNOWN INDICATION
     Dosage: UNK
  16. MOTRIN [Concomitant]
     Active Substance: IBUPROFEN
     Indication: PAIN
     Dosage: UNK, PRN
     Dates: start: 20160310
  17. ALAVERT ALLERGY [Concomitant]
     Active Substance: LORATADINE
     Indication: SEASONAL ALLERGY
     Dosage: UNK
     Dates: start: 201701
  18. QVAR [Concomitant]
     Active Substance: BECLOMETHASONE DIPROPIONATE
     Indication: ASTHMA
     Dosage: UNK
     Dates: start: 20150914
  19. LORAZEPAM. [Concomitant]
     Active Substance: LORAZEPAM
     Indication: PRODUCT USED FOR UNKNOWN INDICATION
     Dosage: UNK
     Dates: start: 20160310, end: 2018
  20. TIZANIDINE. [Concomitant]
     Active Substance: TIZANIDINE
     Indication: MYALGIA
     Dosage: UNK, PRN
     Dates: start: 20171211, end: 201903
  21. TYLENOL [Concomitant]
     Active Substance: ACETAMINOPHEN
     Indication: PAIN
     Dosage: UNK, PRN
  22. VIAGRA [Suspect]
     Active Substance: SILDENAFIL CITRATE
     Indication: ERECTILE DYSFUNCTION
     Dosage: 50 MG, PRN
     Route: 065
     Dates: start: 20060316, end: 20060426
  23. VIAGRA [Suspect]
     Active Substance: SILDENAFIL CITRATE
     Dosage: 50-100 MG, PRN
     Route: 065
     Dates: start: 20090519, end: 201006

REACTIONS (3)
  - Lentigo maligna [Unknown]
  - Squamous cell carcinoma [Recovered/Resolved]
  - Hyperkeratosis [Recovered/Resolved]

NARRATIVE: CASE EVENT DATE: 200407
